FAERS Safety Report 8077587-3 (Version None)
Quarter: 2012Q1

REPORT INFORMATION
  Report Type: 
  Country: None (occurrence: None)
  Receive Date: 20120127
  Receipt Date: 20120119
  Transmission Date: 20120608
  Serious: Yes (Other)
  Sender: FDA-Public Use
  Company Number: PE-ROCHE-1032392

PATIENT
  Sex: Female
  Weight: 57 kg

DRUGS (1)
  1. ISOTRETINOIN [Suspect]
     Indication: ACNE
     Route: 048
     Dates: start: 20110803

REACTIONS (5)
  - DRY SKIN [None]
  - HYPOGEUSIA [None]
  - HYPOSMIA [None]
  - BACK PAIN [None]
  - MOTION SICKNESS [None]
